FAERS Safety Report 13295999 (Version 6)
Quarter: 2017Q4

REPORT INFORMATION
  Report Type: Report from Study
  Country: US (occurrence: US)
  Receive Date: 20170304
  Receipt Date: 20171215
  Transmission Date: 20180320
  Serious: Yes (Other)
  Sender: FDA-Public Use
  Company Number: US-B.I. PHARMACEUTICALS,INC./RIDGEFIELD-2016-BI-43998BI

PATIENT
  Age: 55 Year
  Sex: Female

DRUGS (4)
  1. DOXYCYCLINE. [Concomitant]
     Active Substance: DOXYCYCLINE
     Indication: PRODUCT USED FOR UNKNOWN INDICATION
     Route: 048
  2. CLINDAMYCIN. [Concomitant]
     Active Substance: CLINDAMYCIN
     Indication: PRODUCT USED FOR UNKNOWN INDICATION
     Route: 065
  3. GILOTRIF [Suspect]
     Active Substance: AFATINIB
     Indication: NON-SMALL CELL LUNG CANCER
     Route: 048
     Dates: start: 20160620
  4. GILOTRIF [Suspect]
     Active Substance: AFATINIB
     Route: 048
     Dates: start: 20160624

REACTIONS (46)
  - Odynophagia [Not Recovered/Not Resolved]
  - Epistaxis [Not Recovered/Not Resolved]
  - Breast pain [Not Recovered/Not Resolved]
  - Goitre [Unknown]
  - Hepatic lesion [Unknown]
  - Sebaceous gland disorder [Unknown]
  - Hair colour changes [Unknown]
  - Eye pain [Not Recovered/Not Resolved]
  - Diplopia [Not Recovered/Not Resolved]
  - Haematemesis [Unknown]
  - Skin sensitisation [Not Recovered/Not Resolved]
  - Weight decreased [Not Recovered/Not Resolved]
  - Anal fissure [Unknown]
  - Influenza [Unknown]
  - Disturbance in attention [Recovered/Resolved]
  - Diarrhoea [Recovered/Resolved]
  - Hair growth abnormal [Unknown]
  - Dry skin [Unknown]
  - Hair disorder [Not Recovered/Not Resolved]
  - Nail disorder [Not Recovered/Not Resolved]
  - Onychoclasis [Unknown]
  - Halo vision [Not Recovered/Not Resolved]
  - Metastasis [Unknown]
  - Dry mouth [Not Recovered/Not Resolved]
  - Dry skin [Not Recovered/Not Resolved]
  - Gastrooesophageal reflux disease [Unknown]
  - Dehydration [Not Recovered/Not Resolved]
  - Feeling abnormal [Not Recovered/Not Resolved]
  - Anxiety [Not Recovered/Not Resolved]
  - Mouth ulceration [Recovered/Resolved]
  - Nail injury [Unknown]
  - Alopecia [Unknown]
  - Pain in extremity [Unknown]
  - Skin disorder [Not Recovered/Not Resolved]
  - Onychomadesis [Unknown]
  - Dehydration [Unknown]
  - Dermatitis acneiform [Not Recovered/Not Resolved]
  - Dysuria [Not Recovered/Not Resolved]
  - Musculoskeletal chest pain [Not Recovered/Not Resolved]
  - Stomatitis [Not Recovered/Not Resolved]
  - Diarrhoea [Not Recovered/Not Resolved]
  - Abdominal pain [Unknown]
  - Disturbance in attention [Not Recovered/Not Resolved]
  - Fatigue [Not Recovered/Not Resolved]
  - Gingival bleeding [Not Recovered/Not Resolved]
  - Hair texture abnormal [Unknown]

NARRATIVE: CASE EVENT DATE: 20160625
